FAERS Safety Report 12860356 (Version 1)
Quarter: 2016Q4

REPORT INFORMATION
  Report Type: Spontaneous
  Country: CH (occurrence: CH)
  Receive Date: 20161019
  Receipt Date: 20161019
  Transmission Date: 20170207
  Serious: Yes (Death, Other)
  Sender: FDA-Public Use
  Company Number: CH-APOPHARMA USA, INC.-2016AP013113

PATIENT
  Age: 76 Year
  Sex: Male

DRUGS (4)
  1. IBRITUMOMAB TIUXETAN [Suspect]
     Active Substance: IBRITUMOMAB TIUXETAN
     Indication: STEM CELL TRANSPLANT
  2. ALKERAN [Suspect]
     Active Substance: MELPHALAN
     Indication: STEM CELL TRANSPLANT
     Dosage: 200 MG/M2, UNKNOWN
     Route: 065
  3. G-CSF [Concomitant]
     Active Substance: GRANULOCYTE COLONY-STIMULATING FACTOR NOS
     Indication: STEM CELL TRANSPLANT
     Dosage: 5 ?G/KG, BID
     Route: 058
  4. VINORELBINE [Concomitant]
     Active Substance: VINORELBINE\VINORELBINE TARTRATE
     Indication: HAEMATOPOIETIC STEM CELL MOBILISATION
     Dosage: 35 MG/M2, UNKNOWN
     Route: 042

REACTIONS (1)
  - Septic shock [Fatal]
